FAERS Safety Report 16763722 (Version 1)
Quarter: 2019Q3

REPORT INFORMATION
  Report Type: Spontaneous
  Country: GB (occurrence: GB)
  Receive Date: 20190902
  Receipt Date: 20190902
  Transmission Date: 20191005
  Serious: Yes (Life-Threatening)
  Sender: FDA-Public Use
  Company Number: GB-TEVA-2019-GB-1099959

PATIENT
  Age: 74 Year
  Sex: Male
  Weight: 75 kg

DRUGS (1)
  1. ACETAZOLAMIDE. [Suspect]
     Active Substance: ACETAZOLAMIDE
     Indication: INTRAOCULAR PRESSURE INCREASED
     Dosage: PRESCRIBED ACETAZOLAMIDE 250MG THREE TIMES A DAY FOR THREE DAYS. TOOK 750MG IN ONE DOSE
     Route: 048
     Dates: start: 20190708, end: 20190708

REACTIONS (4)
  - Cardiac arrest [Recovered/Resolved with Sequelae]
  - Accidental overdose [Recovered/Resolved with Sequelae]
  - Respiratory arrest [Recovered/Resolved with Sequelae]
  - Dyspnoea [Recovered/Resolved with Sequelae]

NARRATIVE: CASE EVENT DATE: 20190708
